FAERS Safety Report 20131999 (Version 1)
Quarter: 2021Q4

REPORT INFORMATION
  Report Type: Spontaneous
  Country: US (occurrence: None)
  Receive Date: 20211130
  Receipt Date: 20211130
  Transmission Date: 20220303
  Serious: Yes (Other)
  Sender: FDA-Public Use
  Company Number: None

PATIENT
  Age: 45 Year
  Sex: Female
  Weight: 65.7 kg

DRUGS (17)
  1. XELJANZ [Suspect]
     Active Substance: TOFACITINIB CITRATE
     Indication: Dermatomyositis
     Dosage: OTHER QUANTITY : 60 TABLET(S);?FREQUENCY : TWICE A DAY;?
     Route: 048
     Dates: start: 20211028, end: 20211031
  2. PREDNISONE [Suspect]
     Active Substance: PREDNISONE
  3. ZAFIRLUKAST [Suspect]
     Active Substance: ZAFIRLUKAST
  4. NALTREXONE [Suspect]
     Active Substance: NALTREXONE
  5. TOPAMAX [Concomitant]
     Active Substance: TOPIRAMATE
  6. LEVBID [Concomitant]
     Active Substance: HYOSCYAMINE SULFATE
  7. Pepto bismol liquid caps [Concomitant]
  8. CROMOLYN SODIUM [Concomitant]
     Active Substance: CROMOLYN SODIUM
  9. METOPROLOL TARTRATE [Concomitant]
     Active Substance: METOPROLOL TARTRATE
  10. BENADRYL [Concomitant]
     Active Substance: DIPHENHYDRAMINE HYDROCHLORIDE
  11. CLARITIN [Concomitant]
     Active Substance: LORATADINE
  12. Pepcid 20 mg [Concomitant]
  13. Medical marijuana and CBD [Concomitant]
  14. ELECTROLYTES NOS [Concomitant]
     Active Substance: ELECTROLYTES NOS
  15. VITAMIN D [Concomitant]
     Active Substance: VITAMIN D NOS
  16. COMPAZINE [Concomitant]
     Active Substance: PROCHLORPERAZINE MALEATE
  17. ZOFRAN [Concomitant]
     Active Substance: ONDANSETRON HYDROCHLORIDE

REACTIONS (10)
  - Mood altered [None]
  - Feelings of worthlessness [None]
  - Thinking abnormal [None]
  - Crying [None]
  - Malaise [None]
  - Fatigue [None]
  - Suicidal ideation [None]
  - Fear [None]
  - Depressed mood [None]
  - Drug interaction [None]

NARRATIVE: CASE EVENT DATE: 20211101
